FAERS Safety Report 13515417 (Version 1)
Quarter: 2017Q2

REPORT INFORMATION
  Report Type: Spontaneous
  Country: US (occurrence: US)
  Receive Date: 20170504
  Receipt Date: 20170504
  Transmission Date: 20170830
  Serious: No
  Sender: FDA-Public Use
  Company Number: US-BAUSCH-BL-2016-022624

PATIENT
  Sex: Female

DRUGS (2)
  1. ALDARA [Suspect]
     Active Substance: IMIQUIMOD
     Indication: OSTEITIS DEFORMANS
  2. ALDARA [Suspect]
     Active Substance: IMIQUIMOD
     Indication: EXTRAMAMMARY PAGET^S DISEASE
     Route: 061
     Dates: start: 201609

REACTIONS (3)
  - Off label use [Unknown]
  - Skin burning sensation [Recovered/Resolved]
  - Skin irritation [Recovered/Resolved]
